FAERS Safety Report 15598716 (Version 1)
Quarter: 2018Q4

REPORT INFORMATION
  Report Type: Spontaneous
  Country: US (occurrence: US)
  Receive Date: 20181102
  Receipt Date: 20181102
  Transmission Date: 20190205
  Serious: No
  Sender: FDA-Public Use
  Company Number: None

PATIENT
  Age: 70 Year
  Sex: Female
  Weight: 63 kg

DRUGS (1)
  1. CARVEDILOL. [Suspect]
     Active Substance: CARVEDILOL
     Indication: CARDIAC FAILURE
     Route: 048
     Dates: start: 20180523, end: 20180710

REACTIONS (5)
  - Cardiac failure [None]
  - Drug intolerance [None]
  - Fatigue [None]
  - Dyspnoea [None]
  - Ventricular tachycardia [None]

NARRATIVE: CASE EVENT DATE: 20180523
